FAERS Safety Report 13435161 (Version 2)
Quarter: 2017Q2

REPORT INFORMATION
  Report Type: Spontaneous
  Country: US (occurrence: US)
  Receive Date: 20170412
  Receipt Date: 20170418
  Transmission Date: 20170830
  Serious: Yes (Other)
  Sender: FDA-Public Use
  Company Number: US-009507513-1704USA001140

PATIENT
  Sex: Female

DRUGS (6)
  1. ALPRAZOLAM. [Concomitant]
     Active Substance: ALPRAZOLAM
  2. OXYBUTYNIN [Concomitant]
     Active Substance: OXYBUTYNIN
  3. INTRON A [Suspect]
     Active Substance: INTERFERON ALFA-2B
     Indication: MALIGNANT MELANOMA
     Dosage: 500.000 U TIW
     Route: 058
     Dates: start: 20170307
  4. LEVOTHYROXINE SODIUM. [Concomitant]
     Active Substance: LEVOTHYROXINE SODIUM
  5. SIMVASTATIN TABLETS, USP [Concomitant]
     Active Substance: SIMVASTATIN
  6. LYRICA [Concomitant]
     Active Substance: PREGABALIN

REACTIONS (3)
  - Unresponsive to stimuli [Unknown]
  - Syncope [Recovered/Resolved]
  - Vomiting [Unknown]

NARRATIVE: CASE EVENT DATE: 2017
